FAERS Safety Report 8886695 (Version 1)
Quarter: 2012Q4

REPORT INFORMATION
  Report Type: 
  Country: US (occurrence: US)
  Receive Date: 20121105
  Receipt Date: 20121105
  Transmission Date: 20130627
  Serious: No
  Sender: FDA-Public Use
  Company Number: US-JNJFOC-20121015376

PATIENT
  Age: 45 None
  Sex: Male
  Weight: 163.3 kg

DRUGS (7)
  1. DURAGESIC [Suspect]
     Indication: ARTHRALGIA
     Route: 062
     Dates: start: 20121012
  2. DILAUDID [Concomitant]
     Indication: BREAKTHROUGH PAIN
     Route: 048
     Dates: start: 2011
  3. LYRICA [Concomitant]
     Indication: PAIN
     Route: 048
     Dates: start: 2012
  4. CYMBALTA [Concomitant]
     Indication: PAIN
     Route: 048
  5. ZANAFLEX [Concomitant]
     Indication: SLEEP DISORDER
     Route: 048
  6. PRISTIQ [Concomitant]
     Route: 048
     Dates: start: 201209
  7. LUNESTA [Concomitant]
     Indication: SLEEP DISORDER
     Route: 048
     Dates: start: 201209

REACTIONS (6)
  - Wrong technique in drug usage process [Unknown]
  - Drug ineffective [Not Recovered/Not Resolved]
  - Insomnia [Not Recovered/Not Resolved]
  - Drug effect decreased [Not Recovered/Not Resolved]
  - Wrong technique in drug usage process [Unknown]
  - Product quality issue [Unknown]
